FAERS Safety Report 10075375 (Version 1)
Quarter: 2014Q2

REPORT INFORMATION
  Report Type: Spontaneous
  Country: DE (occurrence: DE)
  Receive Date: 20140414
  Receipt Date: 20140414
  Transmission Date: 20141212
  Serious: Yes (Other)
  Sender: FDA-Public Use
  Company Number: DE-RANBAXY-2014RR-80201

PATIENT
  Age: 1 Day
  Sex: Male

DRUGS (3)
  1. SERTRALINE [Suspect]
     Indication: BORDERLINE PERSONALITY DISORDER
     Dosage: 25 MG, QD
     Route: 064
     Dates: start: 20120626, end: 20130401
  2. SEROQUEL RETARD [Suspect]
     Indication: BORDERLINE PERSONALITY DISORDER
     Dosage: 100 MG, DAILY
     Route: 064
     Dates: start: 20120626, end: 20130401
  3. INSULIN [Concomitant]
     Indication: GESTATIONAL DIABETES
     Dosage: UNK
     Route: 064

REACTIONS (2)
  - Neonatal respiratory distress syndrome [Recovered/Resolved]
  - Drug withdrawal syndrome neonatal [Recovered/Resolved]
